FAERS Safety Report 6525903-3 (Version None)
Quarter: 2009Q4

REPORT INFORMATION
  Report Type: 
  Country: None (occurrence: None)
  Receive Date: 20091228
  Receipt Date: 20091124
  Transmission Date: 20100525
  Serious: Yes (Life-Threatening)
  Sender: FDA-Public Use
  Company Number: AE-2009-322

PATIENT
  Age: 59 Year
  Sex: Female
  Weight: 80 kg

DRUGS (6)
  1. METFORMIN HYDROCHLORIDE [Suspect]
     Indication: TYPE 2 DIABETES MELLITUS
     Dosage: 500MG, TID,ORAL
     Route: 048
     Dates: start: 19940101
  2. CIMETIDINE [Suspect]
     Indication: ABDOMINAL PAIN UPPER
     Dosage: 400MG,BID,ORAL
     Route: 048
     Dates: start: 19990101
  3. ORLISTAT [Suspect]
     Indication: OBESITY
     Dosage: 120MG, TID
     Dates: start: 19940101, end: 19990914
  4. ASPIRIN [Concomitant]
  5. SODIUM BICARBONATE [Concomitant]
  6. AMILORIDE, FRUSEMIDE [Concomitant]

REACTIONS (12)
  - ABDOMINAL PAIN [None]
  - ASTHENIA [None]
  - CIRCULATORY COLLAPSE [None]
  - DEPRESSED LEVEL OF CONSCIOUSNESS [None]
  - DIARRHOEA [None]
  - DIZZINESS [None]
  - DRUG INTERACTION [None]
  - DYSARTHRIA [None]
  - LACTIC ACIDOSIS [None]
  - RENAL FAILURE ACUTE [None]
  - VISION BLURRED [None]
  - VOMITING [None]
